FAERS Safety Report 16767835 (Version 2)
Quarter: 2019Q3

REPORT INFORMATION
  Report Type: Spontaneous
  Country: DE (occurrence: DE)
  Receive Date: 20190903
  Receipt Date: 20190905
  Transmission Date: 20191005
  Serious: Yes (Other)
  Sender: FDA-Public Use
  Company Number: PHHY2019DE202907

PATIENT
  Age: 74 Year
  Sex: Female

DRUGS (2)
  1. GLIVEC [Suspect]
     Active Substance: IMATINIB MESYLATE
     Dosage: 400 MG, QD
     Route: 065
  2. GLIVEC [Suspect]
     Active Substance: IMATINIB MESYLATE
     Indication: CHRONIC MYELOID LEUKAEMIA
     Dosage: 400 MG, QD
     Route: 065
     Dates: start: 2013

REACTIONS (8)
  - Electrocardiogram QT prolonged [Unknown]
  - Drug ineffective [Unknown]
  - Rash [Unknown]
  - Laboratory test abnormal [Unknown]
  - Nausea [Unknown]
  - Diarrhoea [Unknown]
  - Intervertebral disc protrusion [Unknown]
  - Back pain [Unknown]
